FAERS Safety Report 6042997-2 (Version None)
Quarter: 2009Q1

REPORT INFORMATION
  Report Type: 
  Country: None (occurrence: None)
  Receive Date: 20090119
  Receipt Date: 20090113
  Transmission Date: 20090719
  Serious: Yes (Other)
  Sender: FDA-Public Use
  Company Number: US-BAYER-200910773NA

PATIENT
  Sex: Female

DRUGS (7)
  1. MAGNEVIST [Suspect]
     Indication: NUCLEAR MAGNETIC RESONANCE IMAGING
     Dates: start: 20010118, end: 20010118
  2. OMNISCAN [Suspect]
     Indication: NUCLEAR MAGNETIC RESONANCE IMAGING
     Dates: start: 20000522, end: 20000522
  3. OMNISCAN [Suspect]
     Dates: start: 20000808, end: 20000808
  4. OMNISCAN [Suspect]
     Dates: start: 20010227, end: 20010227
  5. OMNISCAN [Suspect]
     Dates: start: 20010521, end: 20010521
  6. OMNISCAN [Suspect]
     Dates: start: 20010731, end: 20010731
  7. OMNISCAN [Suspect]
     Dates: start: 20031110, end: 20031110

REACTIONS (12)
  - ANHEDONIA [None]
  - ANXIETY [None]
  - BONE PAIN [None]
  - EMOTIONAL DISTRESS [None]
  - EXTREMITY CONTRACTURE [None]
  - FIBROSIS [None]
  - GENERAL PHYSICAL HEALTH DETERIORATION [None]
  - MOBILITY DECREASED [None]
  - NEPHROGENIC SYSTEMIC FIBROSIS [None]
  - PAIN [None]
  - SCAR [None]
  - SKIN LESION [None]
